FAERS Safety Report 22396927 (Version 4)
Quarter: 2024Q1

REPORT INFORMATION
  Report Type: Spontaneous
  Country: IT (occurrence: IT)
  Receive Date: 20230601
  Receipt Date: 20240305
  Transmission Date: 20240409
  Serious: Yes (Other)
  Sender: FDA-Public Use
  Company Number: IT-FreseniusKabi-FK202306783

PATIENT
  Age: 41 Year
  Sex: Female

DRUGS (6)
  1. KEYTRUDA [Suspect]
     Active Substance: PEMBROLIZUMAB
     Indication: Triple negative breast cancer
     Dosage: PEMBROLIZUMAB 200 MG/DAY Q21
     Route: 042
     Dates: start: 20230330, end: 20230330
  2. KEYTRUDA [Suspect]
     Active Substance: PEMBROLIZUMAB
     Indication: Invasive ductal breast carcinoma
  3. CARBOPLATIN [Suspect]
     Active Substance: CARBOPLATIN
     Indication: Triple negative breast cancer
     Dosage: 137.6 MILLIGRAM, Q 21 D ON DAYS 1, 8, 15
     Route: 042
     Dates: start: 20230330, end: 20230413
  4. CARBOPLATIN [Suspect]
     Active Substance: CARBOPLATIN
     Indication: Invasive ductal breast carcinoma
     Dosage: AUC 1.5 GG 1 Q 21
     Route: 042
     Dates: start: 20230330, end: 20230608
  5. PACLITAXEL [Suspect]
     Active Substance: PACLITAXEL
     Indication: Triple negative breast cancer
     Dosage: 209.06 MILLIGRAM, Q 21 D ON DAYS 1, 8, 15
     Route: 042
     Dates: start: 20230330, end: 20230413
  6. PACLITAXEL [Suspect]
     Active Substance: PACLITAXEL
     Indication: Invasive ductal breast carcinoma
     Dosage: 80 MG/M2, 80MG/MQ GG 1 , 8 , 15 Q 21
     Route: 042
     Dates: start: 20230330, end: 20230608

REACTIONS (3)
  - Alanine aminotransferase increased [Unknown]
  - Gamma-glutamyltransferase increased [Unknown]
  - Aspartate aminotransferase increased [Unknown]

NARRATIVE: CASE EVENT DATE: 20230426
